FAERS Safety Report 10006669 (Version 1)
Quarter: 2014Q1

REPORT INFORMATION
  Report Type: Spontaneous
  Country: US (occurrence: US)
  Receive Date: 20140313
  Receipt Date: 20140313
  Transmission Date: 20141002
  Serious: No
  Sender: FDA-Public Use
  Company Number: US-PFIZER INC-2014072322

PATIENT
  Age: 83 Year
  Sex: Female

DRUGS (10)
  1. CELEBREX [Suspect]
     Dosage: UNK
  2. LIPITOR [Suspect]
     Dosage: UNK
  3. DOXYCYCLINE CALCIUM [Suspect]
     Dosage: UNK
  4. CODEINE [Suspect]
     Dosage: UNK
  5. TUSSI ORGANIDIN DM [Suspect]
     Dosage: UNK
  6. AMOXIL [Suspect]
     Dosage: UNK
  7. CEPHALEXIN [Suspect]
     Dosage: UNK
  8. CRESTOR [Suspect]
     Dosage: UNK
  9. KEFLEX [Suspect]
     Dosage: UNK
  10. VIOXX [Suspect]
     Dosage: UNK

REACTIONS (1)
  - Drug hypersensitivity [Unknown]
